FAERS Safety Report 5345918-0 (Version None)
Quarter: 2007Q2

REPORT INFORMATION
  Report Type: 
  Country: None (occurrence: None)
  Receive Date: 20070605
  Receipt Date: 20070531
  Transmission Date: 20071010
  Serious: Yes (Death)
  Sender: FDA-Public Use
  Company Number: A0653936A

PATIENT
  Age: 74 Year
  Sex: Female
  Weight: 86 kg

DRUGS (12)
  1. PAXIL [Suspect]
     Indication: DRUG USE FOR UNKNOWN INDICATION
     Dosage: 10MG PER DAY
     Route: 048
  2. FENTANYL [Suspect]
     Dosage: 25MG PER DAY
     Route: 058
  3. ELAVIL [Suspect]
     Dosage: 25MG AS REQUIRED
  4. AVANDIA [Concomitant]
     Dosage: 4MG TWICE PER DAY
     Route: 048
  5. NOVASEN [Concomitant]
     Dosage: 325MG PER DAY
     Route: 048
  6. FERROUS SULFATE [Concomitant]
  7. ADALAT [Concomitant]
     Dosage: 30MG PER DAY
  8. PREVACID [Concomitant]
     Dosage: 30MG PER DAY
  9. FLOVENT [Concomitant]
  10. NOVOLIN 50/50 [Concomitant]
  11. PULMICORT [Concomitant]
  12. QUININE SULFATE [Concomitant]
     Dosage: 300MG PER DAY

REACTIONS (7)
  - CONFUSIONAL STATE [None]
  - DEATH [None]
  - DRY SKIN [None]
  - HYPERTHERMIA MALIGNANT [None]
  - LUNG INFILTRATION [None]
  - MUSCLE RIGIDITY [None]
  - TACHYCARDIA [None]
